FAERS Safety Report 9539313 (Version 6)
Quarter: 2013Q4

REPORT INFORMATION
  Report Type: Report from Study
  Country: CA (occurrence: CA)
  Receive Date: 20130920
  Receipt Date: 20131226
  Transmission Date: 20140711
  Serious: Yes (Death, Hospitalization)
  Sender: FDA-Public Use
  Company Number: CA-B.I. PHARMACEUTICALS,INC./RIDGEFIELD-2013-BI-28576BI

PATIENT
  Age: 58 Year
  Sex: Female
  Weight: 64.8 kg

DRUGS (1)
  1. BIBW 2992 [Suspect]
     Indication: LUNG ADENOCARCINOMA
     Dosage: 40 MG
     Route: 048
     Dates: start: 20121217, end: 20130830

REACTIONS (1)
  - Paraneoplastic encephalomyelitis [Fatal]
